FAERS Safety Report 25105227 (Version 1)
Quarter: 2025Q1

REPORT INFORMATION
  Report Type: Spontaneous
  Country: US (occurrence: None)
  Receive Date: 20250320
  Receipt Date: 20250320
  Transmission Date: 20250408
  Serious: No
  Sender: FDA-CTU
  Company Number: None

PATIENT
  Age: 65 Year
  Sex: Male

DRUGS (1)
  1. PROTAMINE SULFATE [Suspect]
     Active Substance: PROTAMINE SULFATE
     Dates: start: 20240807, end: 20240807

REACTIONS (5)
  - Anaphylactic reaction [None]
  - Vascular procedure complication [None]
  - Anaesthetic complication [None]
  - Obstructive airways disorder [None]
  - Hypoventilation [None]

NARRATIVE: CASE EVENT DATE: 20240807
